FAERS Safety Report 23850454 (Version 1)
Quarter: 2024Q2

REPORT INFORMATION
  Report Type: Other
  Country: US (occurrence: None)
  Receive Date: 20240513
  Receipt Date: 20240513
  Transmission Date: 20240716
  Serious: Yes (Hospitalization)
  Sender: FDA-Public Use
  Company Number: US-ROCHE-3556451

PATIENT
  Age: 28 Year
  Sex: Male

DRUGS (1)
  1. OCREVUS [Suspect]
     Active Substance: OCRELIZUMAB
     Indication: Relapsing multiple sclerosis
     Dosage: DATE OF TREATMENT: 14/JUL/2022, 14/MAR/2023, 22/MAR/2023, 03/AUG/2023, 22/SEP/2023, 10/APR/2023
     Route: 065
     Dates: start: 20220714

REACTIONS (3)
  - Influenza [Recovered/Resolved]
  - Gait inability [Unknown]
  - Malaise [Recovered/Resolved]

NARRATIVE: CASE EVENT DATE: 20240401
